FAERS Safety Report 6810590-7 (Version None)
Quarter: 2010Q2

REPORT INFORMATION
  Report Type: 
  Country: None (occurrence: None)
  Receive Date: 20100630
  Receipt Date: 20100618
  Transmission Date: 20101027
  Serious: Yes (Hospitalization)
  Sender: FDA-Public Use
  Company Number: BR-MEDIMMUNE-MEDI-0010530

PATIENT
  Sex: Female
  Weight: 7.8 kg

DRUGS (3)
  1. SYNAGIS [Suspect]
     Route: 030
     Dates: start: 20090101, end: 20090101
  2. SYNAGIS [Suspect]
     Route: 030
     Dates: start: 20100501, end: 20100501
  3. OMEPRAZOLE [Concomitant]

REACTIONS (4)
  - BRONCHIOLITIS [None]
  - BRONCHOSPASM [None]
  - INFLUENZA [None]
  - RESPIRATORY RATE INCREASED [None]
